FAERS Safety Report 5823705-4 (Version None)
Quarter: 2008Q3

REPORT INFORMATION
  Report Type: 
  Country: None (occurrence: None)
  Receive Date: 20080725
  Receipt Date: 20080717
  Transmission Date: 20090109
  Serious: Yes (Disabling, Other)
  Sender: FDA-Public Use
  Company Number: GB-ABBOTT-08P-167-0451502-00

PATIENT
  Sex: Female

DRUGS (2)
  1. REDUCTIL [Suspect]
     Indication: WEIGHT DECREASED
     Route: 048
     Dates: start: 20080223, end: 20080402
  2. ORLISTAT [Concomitant]
     Indication: WEIGHT DECREASED
     Dosage: TDS
     Dates: start: 20070222, end: 20080222

REACTIONS (6)
  - ARTHRALGIA [None]
  - DRUG DOSE OMISSION [None]
  - JOINT SWELLING [None]
  - JOINT WARMTH [None]
  - MUSCULOSKELETAL DISCOMFORT [None]
  - OEDEMA PERIPHERAL [None]
